FAERS Safety Report 13923024 (Version 1)
Quarter: 2017Q3

REPORT INFORMATION
  Report Type: Report from Study
  Country: None (occurrence: BR)
  Receive Date: 20170830
  Receipt Date: 20170830
  Transmission Date: 20171127
  Serious: Yes (Other)
  Sender: FDA-Public Use
  Company Number: BR-ABBVIE-17P-020-1927570-00

PATIENT
  Sex: Female
  Weight: 68 kg

DRUGS (4)
  1. OMEPRAZOLE. [Suspect]
     Active Substance: OMEPRAZOLE
     Indication: PRODUCT USED FOR UNKNOWN INDICATION
     Route: 065
  2. SYNTHROID [Interacting]
     Active Substance: LEVOTHYROXINE SODIUM
     Dosage: FORM STRENGTH: 137 MCG;  FROM MONDAY TO FRIDAY 1 TABLET DAILY; IN THE MORNING, FASTING.
     Route: 065
     Dates: start: 201708
  3. SYNTHROID [Suspect]
     Active Substance: LEVOTHYROXINE SODIUM
     Indication: HYPOTHYROIDISM
     Dosage: DAILY DOSE: 40 MINUTES TO 1 HOUR BEFORE BREAKFAST; MORNING / AROUND 5:00 A.M TO 05:30 A.M.
     Route: 048
  4. SYNTHROID [Interacting]
     Active Substance: LEVOTHYROXINE SODIUM
     Dosage: FORM STRENGTH: 125 MCG; 1 TABLET DAILY ON SATURDAY AND SUNDAY; IN THE MORNING, FASTING.
     Route: 065
     Dates: start: 201708

REACTIONS (9)
  - Drug interaction [Unknown]
  - Drug administration error [Unknown]
  - Arrhythmia [Recovered/Resolved]
  - Tachycardia [Unknown]
  - Gastric disorder [Recovered/Resolved]
  - Malaise [Not Recovered/Not Resolved]
  - Thyroid function test normal [Recovered/Resolved]
  - Feeling of despair [Not Recovered/Not Resolved]
  - Drug dose omission [Unknown]

NARRATIVE: CASE EVENT DATE: 2016
